FAERS Safety Report 23040149 (Version 1)
Quarter: 2023Q4

REPORT INFORMATION
  Report Type: Spontaneous
  Country: US (occurrence: US)
  Receive Date: 20231006
  Receipt Date: 20231006
  Transmission Date: 20240110
  Serious: Yes (Hospitalization, Other)
  Sender: FDA-Public Use
  Company Number: US-SEATTLE GENETICS-2023SGN10914

PATIENT
  Age: 6 Decade
  Sex: Female

DRUGS (1)
  1. TIVDAK [Suspect]
     Active Substance: TISOTUMAB VEDOTIN-TFTV
     Indication: Product used for unknown indication
     Dosage: UNK
     Route: 065

REACTIONS (6)
  - Cytopenia [Unknown]
  - Constipation [Recovered/Resolved]
  - Oral mucosal eruption [Unknown]
  - Feeding disorder [Unknown]
  - Alopecia [Unknown]
  - Rash [Unknown]
